FAERS Safety Report 12675781 (Version 1)
Quarter: 2016Q3

REPORT INFORMATION
  Report Type: Spontaneous
  Country: US (occurrence: US)
  Receive Date: 20160823
  Receipt Date: 20160823
  Transmission Date: 20161109
  Serious: No
  Sender: FDA-Public Use
  Company Number: US-JAZZ-2016-US-006725

PATIENT
  Sex: Female

DRUGS (22)
  1. MELOXICAM. [Concomitant]
     Active Substance: MELOXICAM
  2. GABAPENTIN. [Concomitant]
     Active Substance: GABAPENTIN
  3. VERAPAMIL [Concomitant]
     Active Substance: VERAPAMIL HYDROCHLORIDE
  4. XYREM [Suspect]
     Active Substance: SODIUM OXYBATE
     Dosage: DOSE ADJUSTMENTS
     Route: 048
  5. BLACK COHOSH [Concomitant]
     Active Substance: BLACK COHOSH
  6. VICODIN [Concomitant]
     Active Substance: ACETAMINOPHEN\HYDROCODONE BITARTRATE
  7. CONCERTA [Concomitant]
     Active Substance: METHYLPHENIDATE HYDROCHLORIDE
  8. XYREM [Suspect]
     Active Substance: SODIUM OXYBATE
     Dosage: 4.5 G, BID
     Route: 048
     Dates: start: 201103
  9. METROGEL [Concomitant]
     Active Substance: METRONIDAZOLE
  10. VITAMIN D3 [Concomitant]
     Active Substance: CHOLECALCIFEROL
  11. XYREM [Suspect]
     Active Substance: SODIUM OXYBATE
     Indication: NARCOLEPSY
     Dosage: 2.25 G, BID
     Route: 048
     Dates: start: 201011, end: 201012
  12. LEVETIRACETAM. [Concomitant]
     Active Substance: LEVETIRACETAM
  13. CYMBALTA [Concomitant]
     Active Substance: DULOXETINE HYDROCHLORIDE
  14. METRONIDAZOLE. [Concomitant]
     Active Substance: METRONIDAZOLE
  15. BUSPIRONE HCL [Concomitant]
     Active Substance: BUSPIRONE HYDROCHLORIDE
  16. FEXOFENADINE HCL [Concomitant]
     Active Substance: FEXOFENADINE HYDROCHLORIDE
  17. SEROQUEL [Concomitant]
     Active Substance: QUETIAPINE FUMARATE
  18. FLUOXETINE HCL [Concomitant]
     Active Substance: FLUOXETINE HYDROCHLORIDE
  19. LORAZEPAM. [Concomitant]
     Active Substance: LORAZEPAM
  20. METHYLPHENIDATE. [Concomitant]
     Active Substance: METHYLPHENIDATE
  21. NORVASC [Concomitant]
     Active Substance: AMLODIPINE BESYLATE
  22. MAGNESIUM OXIDE. [Concomitant]
     Active Substance: MAGNESIUM OXIDE

REACTIONS (4)
  - Anxiety [Not Recovered/Not Resolved]
  - Unevaluable event [Unknown]
  - Tremor [Not Recovered/Not Resolved]
  - Memory impairment [Not Recovered/Not Resolved]
